FAERS Safety Report 5502604-1 (Version None)
Quarter: 2007Q4

REPORT INFORMATION
  Report Type: 
  Country: None (occurrence: None)
  Receive Date: 20071031
  Receipt Date: 20071022
  Transmission Date: 20080405
  Serious: Yes (Other)
  Sender: FDA-Public Use
  Company Number: SE-JNJFOC-20071005907

PATIENT
  Age: 6 Decade
  Sex: Male

DRUGS (3)
  1. REMICADE [Suspect]
     Indication: CROHN'S DISEASE
     Dosage: 31 INFUSIONS
     Route: 042
  2. IMUREL [Concomitant]
  3. PENTASA [Concomitant]

REACTIONS (1)
  - PROSTATE CANCER [None]
